FAERS Safety Report 7620150-6 (Version None)
Quarter: 2011Q3

REPORT INFORMATION
  Report Type: 
  Country: None (occurrence: None)
  Receive Date: 20110719
  Receipt Date: 20110706
  Transmission Date: 20111222
  Serious: Yes (Other)
  Sender: FDA-Public Use
  Company Number: US-BAYER-2011-059290

PATIENT
  Sex: Female

DRUGS (2)
  1. ASPIRIN [Suspect]
     Route: 048
  2. ASPIRIN [Suspect]
     Indication: CHEST PAIN
     Dosage: BOTTLE COUNT 24S
     Route: 048
     Dates: start: 20110601

REACTIONS (2)
  - CHEST PAIN [None]
  - DEAFNESS [None]
